FAERS Safety Report 5716100-X (Version None)
Quarter: 2008Q2

REPORT INFORMATION
  Report Type: 
  Country: None (occurrence: None)
  Receive Date: 20080423
  Receipt Date: 20080423
  Transmission Date: 20081010
  Serious: Yes (Life-Threatening, Other)
  Sender: FDA-Public Use
  Company Number: None

PATIENT
  Age: 58 Year
  Sex: Male
  Weight: 90.7194 kg

DRUGS (1)
  1. CHANTIX [Suspect]
     Indication: NICOTINE DEPENDENCE
     Dosage: 1MG BID PO
     Route: 048
     Dates: start: 20080101, end: 20080328

REACTIONS (8)
  - ABNORMAL BEHAVIOUR [None]
  - ABNORMAL DREAMS [None]
  - DEPRESSION [None]
  - DISSOCIATION [None]
  - HYPERSOMNIA [None]
  - MOOD ALTERED [None]
  - NEGATIVISM [None]
  - SUICIDAL IDEATION [None]
